FAERS Safety Report 16654022 (Version 3)
Quarter: 2019Q4

REPORT INFORMATION
  Report Type: Spontaneous
  Country: ES (occurrence: ES)
  Receive Date: 20190731
  Receipt Date: 20191002
  Transmission Date: 20200122
  Serious: No
  Sender: FDA-Public Use
  Company Number: ES-BEH-2019104721

PATIENT
  Age: 16 Month
  Sex: Male
  Weight: 9.7 kg

DRUGS (15)
  1. HIZENTRA [Suspect]
     Active Substance: HUMAN IMMUNOGLOBULIN G
     Dosage: 5 MILLILITER, TOT
     Route: 058
     Dates: start: 20190503, end: 20190503
  2. HIZENTRA [Suspect]
     Active Substance: HUMAN IMMUNOGLOBULIN G
     Dosage: 5 MILLILITER, TOT
     Route: 058
     Dates: start: 20190518, end: 20190518
  3. HIZENTRA [Suspect]
     Active Substance: HUMAN IMMUNOGLOBULIN G
     Indication: HYPOGAMMAGLOBULINAEMIA
     Dosage: 5 MILLILITER, TOT
     Route: 058
     Dates: start: 20190313, end: 20190313
  4. HIZENTRA [Suspect]
     Active Substance: HUMAN IMMUNOGLOBULIN G
     Dosage: 5 MILLILITER, TOT
     Route: 058
     Dates: start: 20190510, end: 20190510
  5. ACETYLSALICYLIC ACID [Concomitant]
     Active Substance: ASPIRIN
     Dosage: 25 MILLIGRAM (1/4 TABLET), QD
     Route: 065
  6. HIZENTRA [Suspect]
     Active Substance: HUMAN IMMUNOGLOBULIN G
     Dosage: 5 MILLILITER, TOT
     Route: 058
     Dates: start: 20190525, end: 20190525
  7. ENOXAPARIN [Concomitant]
     Active Substance: ENOXAPARIN
     Dosage: 7 MILLIGRAM (0.45 ML OF SYRINGE), QD
     Route: 058
  8. HIZENTRA [Suspect]
     Active Substance: HUMAN IMMUNOGLOBULIN G
     Dosage: 5 MILLILITER, TOT
     Route: 058
     Dates: start: 20190327, end: 20190327
  9. HIZENTRA [Suspect]
     Active Substance: HUMAN IMMUNOGLOBULIN G
     Dosage: 5 MILLILITER, TOT
     Route: 058
     Dates: start: 20190602, end: 20190602
  10. HIZENTRA [Suspect]
     Active Substance: HUMAN IMMUNOGLOBULIN G
     Dosage: 5 MILLILITER, TOT
     Route: 058
     Dates: start: 20190412, end: 20190412
  11. SIROLIMUS. [Concomitant]
     Active Substance: SIROLIMUS
     Dosage: 0.8 MILLILITER, BID
     Route: 065
  12. HIZENTRA [Suspect]
     Active Substance: HUMAN IMMUNOGLOBULIN G
     Dosage: 5 MILLILITER, TOT
     Route: 058
     Dates: start: 20190419, end: 20190419
  13. HIZENTRA [Suspect]
     Active Substance: HUMAN IMMUNOGLOBULIN G
     Dosage: 5 MILLILITER, TOT
     Route: 058
     Dates: start: 20190403, end: 20190403
  14. HIZENTRA [Suspect]
     Active Substance: HUMAN IMMUNOGLOBULIN G
     Dosage: 5 MILLILITER, TOT
     Route: 058
     Dates: start: 20190320, end: 20190320
  15. HIZENTRA [Suspect]
     Active Substance: HUMAN IMMUNOGLOBULIN G
     Dosage: 5 MILLILITER, TOT
     Route: 058
     Dates: start: 20190426, end: 20190426

REACTIONS (25)
  - Infusion site nodule [Unknown]
  - Infusion site nodule [Unknown]
  - Infusion site erythema [Unknown]
  - Infusion site nodule [Unknown]
  - Infusion site erythema [Unknown]
  - Infusion site erythema [Unknown]
  - Infusion site erythema [Unknown]
  - Infusion site nodule [Unknown]
  - Infusion site erythema [Unknown]
  - Infusion site nodule [Unknown]
  - Infusion site nodule [Unknown]
  - Infusion site nodule [Unknown]
  - Infusion site nodule [Unknown]
  - Infusion site nodule [Unknown]
  - Infusion site nodule [Unknown]
  - Infusion site nodule [Unknown]
  - Pyrexia [Recovered/Resolved]
  - Infusion site erythema [Unknown]
  - Infusion site erythema [Unknown]
  - Infusion site erythema [Unknown]
  - Infusion site erythema [Unknown]
  - Infusion site erythema [Unknown]
  - Infusion site erythema [Unknown]
  - Infusion site nodule [Unknown]
  - Infusion site erythema [Unknown]

NARRATIVE: CASE EVENT DATE: 20190313
